FAERS Safety Report 6761396-9 (Version None)
Quarter: 2010Q2

REPORT INFORMATION
  Report Type: 
  Country: None (occurrence: None)
  Receive Date: 20100608
  Receipt Date: 20100528
  Transmission Date: 20101027
  Serious: Yes (Hospitalization)
  Sender: FDA-Public Use
  Company Number: AR-AMGEN-QUU413260

PATIENT
  Sex: Male
  Weight: 70 kg

DRUGS (3)
  1. ENBREL [Suspect]
     Indication: RHEUMATOID ARTHRITIS
     Route: 058
     Dates: start: 20080704, end: 20100319
  2. ENBREL [Suspect]
     Route: 058
     Dates: end: 20100514
  3. LOTRIAL [Concomitant]

REACTIONS (4)
  - CONDITION AGGRAVATED [None]
  - PLEURAL EFFUSION [None]
  - PLEURAL INFECTION [None]
  - RHEUMATOID ARTHRITIS [None]
